FAERS Safety Report 5803675-5 (Version None)
Quarter: 2008Q3

REPORT INFORMATION
  Report Type: 
  Country: None (occurrence: None)
  Receive Date: 20080708
  Receipt Date: 20070605
  Transmission Date: 20090109
  Serious: No
  Sender: FDA-Public Use
  Company Number: US-AMGEN-KDL228000

PATIENT
  Sex: Female

DRUGS (3)
  1. KINERET [Suspect]
     Indication: RHEUMATOID ARTHRITIS
     Route: 058
     Dates: start: 20070505
  2. PLAQUENIL [Concomitant]
     Route: 048
     Dates: start: 19920101
  3. METHOTREXATE [Concomitant]
     Route: 048
     Dates: start: 19920101

REACTIONS (2)
  - INJECTION SITE ERYTHEMA [None]
  - INJECTION SITE HAEMATOMA [None]
